FAERS Safety Report 6159623-4 (Version None)
Quarter: 2009Q2

REPORT INFORMATION
  Report Type: 
  Country: None (occurrence: None)
  Receive Date: 20090415
  Receipt Date: 20090403
  Transmission Date: 20091009
  Serious: Yes (Other)
  Sender: FDA-Public Use
  Company Number: 200813900GPV

PATIENT
  Age: 25 Year
  Sex: Female

DRUGS (9)
  1. FLUDARABINE PHOSPHATE [Suspect]
     Indication: APLASTIC ANAEMIA
     Dosage: 30 MG/M2
  2. FLUDARABINE PHOSPHATE [Suspect]
     Indication: BONE MARROW CONDITIONING REGIMEN
     Dosage: 30 MG/M2
  3. CYCLOPHOSPHAMIDE [Suspect]
     Indication: APLASTIC ANAEMIA
     Dosage: 750 MG/M2
  4. CYCLOPHOSPHAMIDE [Suspect]
     Indication: BONE MARROW CONDITIONING REGIMEN
     Dosage: 750 MG/M2
  5. TACROLIMUS [Concomitant]
  6. ATG (HORSE) (ANTILYMPHOCYTE IMMUNOGLOBULIN (HORSE)) [Concomitant]
  7. CYCLOSPORINE [Concomitant]
  8. GRANULOCYTE-COLONY STIMULATING FACTOR (G-CSF) [Concomitant]
  9. PREDNISOLONE [Concomitant]

REACTIONS (5)
  - ACUTE GRAFT VERSUS HOST DISEASE IN INTESTINE [None]
  - ADENOVIRAL HAEMORRHAGIC CYSTITIS [None]
  - ENGRAFTMENT SYNDROME [None]
  - HERPES ZOSTER [None]
  - PANCYTOPENIA [None]
